FAERS Safety Report 9257700 (Version 1)
Quarter: 2013Q1

REPORT INFORMATION
  Report Type: Spontaneous
  Country: US (occurrence: None)
  Receive Date: 20121212
  Receipt Date: 20121212
  Transmission Date: 20140127
  Serious: No
  Sender: FDA-Public Use
  Company Number: 1209USA005416

PATIENT
  Age: 58 Year
  Sex: Male
  Weight: 72.6 kg

DRUGS (2)
  1. VICTRELIS (BOCEPREVIR )CAPSULE,200MG [Suspect]
     Indication: HEPATITIS C
     Dosage: 4 CAPSULES BY MOUTH EVERY 8 HOURS FPR 32 WEEKS , ORAL
     Route: 048
     Dates: start: 20120510
  2. PROCRIT  (EPOETIN ALFA) [Concomitant]

REACTIONS (1)
  - Swelling [None]
